FAERS Safety Report 7322872-3 (Version None)
Quarter: 2011Q1

REPORT INFORMATION
  Report Type: 
  Country: None (occurrence: None)
  Receive Date: 20110301
  Receipt Date: 20110215
  Transmission Date: 20110831
  Serious: Yes (Life-Threatening, Hospitalization)
  Sender: FDA-Public Use
  Company Number: NL-MYLANLABS-2011S1003149

PATIENT
  Age: 83 Year
  Sex: Male
  Weight: 70 kg

DRUGS (6)
  1. AMIODARONE HYDROCHLORIDE [Concomitant]
     Indication: PRODUCT USED FOR UNKNOWN INDICATION
     Dosage: 1 DD 200 MG
     Route: 048
  2. ACENOCOUMAROL [Concomitant]
     Indication: PRODUCT USED FOR UNKNOWN INDICATION
     Dosage: DOSE NOT CHANGED
     Route: 048
  3. SPIRONOLACTONE [Suspect]
     Indication: HYPERTENSION
     Dosage: 1 DD 25 MG
     Route: 048
     Dates: start: 20100425, end: 20110131
  4. PERINDOPRIL ERBUMINE [Suspect]
     Indication: HYPERTENSION
     Dosage: 1 DD 8 MG
     Route: 048
     Dates: start: 20070101, end: 20110131
  5. LIPITOR [Concomitant]
     Indication: PRODUCT USED FOR UNKNOWN INDICATION
     Dosage: 1 DD 10 MG
     Route: 048
  6. METOPROLOL SUCCINATE [Suspect]
     Indication: HYPERTENSION
     Dosage: 1 DD 50 MG
     Route: 048
     Dates: start: 20070101, end: 20110131

REACTIONS (1)
  - HYPERKALAEMIA [None]
